FAERS Safety Report 8841844 (Version 4)
Quarter: 2013Q1

REPORT INFORMATION
  Report Type: Spontaneous
  Country: JP (occurrence: JP)
  Receive Date: 20121016
  Receipt Date: 20130124
  Transmission Date: 20140127
  Serious: Yes (Hospitalization, Other)
  Sender: FDA-Public Use
  Company Number: JP-BAYER-2012-045984

PATIENT
  Age: 76 Year
  Sex: Male

DRUGS (6)
  1. NEXAVAR [Suspect]
     Indication: HEPATOCELLULAR CARCINOMA
     Dosage: DAILY DOSE 800 MG
     Route: 048
     Dates: start: 20120416, end: 2012
  2. NEXAVAR [Suspect]
     Indication: HEPATOCELLULAR CARCINOMA
     Dosage: DAILY DOSE 400 MG
     Route: 048
     Dates: start: 2012, end: 20120823
  3. NEXAVAR [Suspect]
     Indication: HEPATOCELLULAR CARCINOMA
     Dosage: 200 MG, DAILY
     Dates: start: 20120830, end: 20120921
  4. NEXAVAR [Suspect]
     Indication: HEPATOCELLULAR CARCINOMA
     Dosage: 200 MG, QOD
     Route: 048
     Dates: start: 20121126, end: 20121226
  5. CISPLATIN [Suspect]
     Indication: REGIONAL CHEMOTHERAPY
     Dosage: DAILY DOSE 10 MG
     Route: 013
     Dates: start: 20120921, end: 20120921
  6. 5-FU [Suspect]
     Indication: REGIONAL CHEMOTHERAPY
     Dosage: UNK
     Route: 013
     Dates: start: 20120921, end: 20120921

REACTIONS (6)
  - Biloma [Recovering/Resolving]
  - Amylase increased [Unknown]
  - Palmar-plantar erythrodysaesthesia syndrome [Unknown]
  - Malaise [Recovering/Resolving]
  - Decreased appetite [Recovering/Resolving]
  - Abdominal pain upper [Recovering/Resolving]
